FAERS Safety Report 7961175-0 (Version None)
Quarter: 2011Q4

REPORT INFORMATION
  Report Type: 
  Country: None (occurrence: None)
  Receive Date: 20111121
  Receipt Date: 20111012
  Transmission Date: 20120403
  Serious: No
  Sender: FDA-Public Use
  Company Number: 1000024648

PATIENT
  Age: 62 Year
  Sex: Male

DRUGS (2)
  1. VIIBRYD [Suspect]
     Indication: DEPRESSION
     Dosage: 10 MG (10 MG,1 IN 1 D),ORAL ; 20 MG (20 MG, 1 IN 1 D),ORAL
     Route: 048
     Dates: start: 20110101
  2. VIIBRYD [Suspect]
     Indication: DEPRESSION
     Dosage: 10 MG (10 MG,1 IN 1 D),ORAL ; 20 MG (20 MG, 1 IN 1 D),ORAL
     Route: 048
     Dates: start: 20110901

REACTIONS (2)
  - ANXIETY [None]
  - NERVOUSNESS [None]
